FAERS Safety Report 7675797-8 (Version None)
Quarter: 2011Q3

REPORT INFORMATION
  Report Type: 
  Country: None (occurrence: None)
  Receive Date: 20110810
  Receipt Date: 20110801
  Transmission Date: 20111222
  Serious: Yes (Hospitalization, Other)
  Sender: FDA-Public Use
  Company Number: US-AMGEN-USASP2011039001

PATIENT
  Age: 65 Year
  Sex: Female

DRUGS (2)
  1. TREXALL [Concomitant]
     Dosage: 1 MG, QWK
     Dates: start: 20090101
  2. ENBREL [Suspect]
     Indication: PSORIATIC ARTHROPATHY
     Dosage: 50 MG, QWK
     Dates: start: 20081114

REACTIONS (9)
  - ALOPECIA [None]
  - DEEP VEIN THROMBOSIS [None]
  - SENSORY DISTURBANCE [None]
  - TENDON RUPTURE [None]
  - OEDEMA PERIPHERAL [None]
  - PAIN IN EXTREMITY [None]
  - WEIGHT INCREASED [None]
  - WEIGHT DECREASED [None]
  - ULCER HAEMORRHAGE [None]
